FAERS Safety Report 4635807-9 (Version None)
Quarter: 2005Q2

REPORT INFORMATION
  Report Type: 
  Country: None (occurrence: None)
  Receive Date: 20050415
  Receipt Date: 20050404
  Transmission Date: 20051028
  Serious: Yes (Hospitalization, Other)
  Sender: FDA-Public Use
  Company Number: GB-JNJFOC-20050401004

PATIENT
  Sex: Female
  Weight: 50 kg

DRUGS (9)
  1. REMICADE [Suspect]
     Indication: RHEUMATOID ARTHRITIS
     Route: 042
  2. OMEPRAZOLE [Concomitant]
  3. METHOTREXATE [Concomitant]
  4. FOLIC ACID [Concomitant]
  5. CO-PROXAMOL [Concomitant]
  6. CO-PROXAMOL [Concomitant]
  7. MELOXICAM [Concomitant]
  8. FOSAMAX [Concomitant]
  9. CALCICHEW [Concomitant]

REACTIONS (1)
  - FEMORAL NECK FRACTURE [None]
